FAERS Safety Report 10410134 (Version 1)
Quarter: 2014Q3

REPORT INFORMATION
  Report Type: Spontaneous
  Country: US (occurrence: US)
  Receive Date: 20140826
  Receipt Date: 20140826
  Transmission Date: 20150326
  Serious: Yes (Hospitalization)
  Sender: FDA-Public Use
  Company Number: US-BRISTOL-MYERS SQUIBB COMPANY-21320387

PATIENT
  Age: 86 Year
  Sex: Male
  Weight: 75.28 kg

DRUGS (1)
  1. ONGLYZA [Suspect]
     Active Substance: SAXAGLIPTIN HYDROCHLORIDE
     Dosage: ONG
     Route: 048
     Dates: start: 201306

REACTIONS (3)
  - Transient ischaemic attack [Unknown]
  - Sleep apnoea syndrome [Unknown]
  - Stent placement [Unknown]

NARRATIVE: CASE EVENT DATE: 201311
